FAERS Safety Report 9700265 (Version 1)
Quarter: 2013Q4

REPORT INFORMATION
  Report Type: Spontaneous
  Country: US (occurrence: US)
  Receive Date: 20131121
  Receipt Date: 20131121
  Transmission Date: 20140711
  Serious: Yes (Hospitalization)
  Sender: FDA-Public Use
  Company Number: US-BAYER-2013-141375

PATIENT
  Age: 42 Year
  Sex: Female
  Weight: 95.69 kg

DRUGS (15)
  1. YASMIN [Suspect]
  2. ACIPHEX [Concomitant]
     Dosage: 20 MG
  3. KENALOG [Concomitant]
     Dosage: 40 MG
     Route: 030
  4. DECADRON [Concomitant]
     Dosage: 4 MG
     Route: 030
  5. CELEBREX [Concomitant]
     Dosage: 200 MG
     Route: 030
  6. NOREL [Concomitant]
  7. NASACORT [Concomitant]
     Route: 045
  8. SYMBICORT [Concomitant]
  9. ADVAIR [Concomitant]
     Indication: DYSPNOEA
  10. ALBUTEROL [Concomitant]
     Indication: DYSPNOEA
  11. MORPHINE [Concomitant]
     Indication: PAIN
  12. PROTONIX [Concomitant]
     Indication: NAUSEA
  13. MS CONTIN [Concomitant]
  14. LORTAB [Concomitant]
     Indication: PAIN
  15. ULTRAM [Concomitant]

REACTIONS (2)
  - Deep vein thrombosis [None]
  - Deep vein thrombosis [None]
